FAERS Safety Report 17388572 (Version 1)
Quarter: 2020Q1

REPORT INFORMATION
  Report Type: Spontaneous
  Country: US (occurrence: US)
  Receive Date: 20200206
  Receipt Date: 20200206
  Transmission Date: 20200409
  Serious: No
  Sender: FDA-Public Use
  Company Number: US-NEXGEN PHARMA, INC.-2079942

PATIENT
  Age: 55 Year
  Sex: Female

DRUGS (1)
  1. CHENODAL [Suspect]
     Active Substance: CHENODIOL
     Indication: LIPID METABOLISM DISORDER
     Route: 048
     Dates: start: 20100612

REACTIONS (3)
  - Urinary incontinence [Not Recovered/Not Resolved]
  - Xanthoma [Recovering/Resolving]
  - Speech disorder [Not Recovered/Not Resolved]
